FAERS Safety Report 7732277-9 (Version None)
Quarter: 2011Q3

REPORT INFORMATION
  Report Type: 
  Country: None (occurrence: None)
  Receive Date: 20110906
  Receipt Date: 20110823
  Transmission Date: 20111222
  Serious: No
  Sender: FDA-Public Use
  Company Number: US-AMGEN-USASP2011043062

PATIENT
  Age: 79 Year
  Sex: Female

DRUGS (6)
  1. METOPROLOL [Concomitant]
     Indication: BLOOD PRESSURE ABNORMAL
     Dosage: 1 MG, QD
  2. ASPIRIN [Concomitant]
     Dosage: 1 MG, QD
  3. PROLIA [Suspect]
     Indication: OSTEOPOROSIS POSTMENOPAUSAL
     Dosage: 60 MG, Q6MO
     Dates: start: 20110718
  4. CALCIUM WITH VITAMIN D             /00944201/ [Concomitant]
     Dosage: 2 MG, BID
  5. VITAMIN D [Concomitant]
     Dosage: UNK IU, UNK
  6. METOPROLOL [Concomitant]
     Indication: PALPITATIONS

REACTIONS (8)
  - ABDOMINAL DISCOMFORT [None]
  - ABDOMINAL DISTENSION [None]
  - TREMOR [None]
  - DYSPEPSIA [None]
  - FLATULENCE [None]
  - MALAISE [None]
  - ASTHENIA [None]
  - THYROID DISORDER [None]
